FAERS Safety Report 7202802-5 (Version None)
Quarter: 2010Q4

REPORT INFORMATION
  Report Type: 
  Country: None (occurrence: None)
  Receive Date: 20101216
  Receipt Date: 20101123
  Transmission Date: 20110411
  Serious: Yes (Other)
  Sender: FDA-Public Use
  Company Number: 2010SP063190

PATIENT
  Age: 34 Year
  Sex: Female
  Weight: 46 kg

DRUGS (6)
  1. PEG-INTRON [Suspect]
     Indication: HEPATITIS C
     Dosage: 80 MG, QW;
     Dates: start: 20050615, end: 20051226
  2. REBETOL [Suspect]
     Indication: HEPATITIS C
  3. ISOPHANE INSULIN [Concomitant]
  4. PARACETAMOL [Concomitant]
  5. CLARITIN [Concomitant]
  6. NORMACOL [Concomitant]

REACTIONS (10)
  - ALOPECIA [None]
  - CONSTIPATION [None]
  - DYSPNOEA [None]
  - FATIGUE [None]
  - HAEMOGLOBIN DECREASED [None]
  - MIGRAINE [None]
  - PROCTOCOLITIS [None]
  - PRURITUS [None]
  - RETINOPATHY PROLIFERATIVE [None]
  - WEIGHT DECREASED [None]
